FAERS Safety Report 17857601 (Version 1)
Quarter: 2020Q2

REPORT INFORMATION
  Report Type: Spontaneous
  Country: SG (occurrence: SG)
  Receive Date: 20200604
  Receipt Date: 20200604
  Transmission Date: 20200714
  Serious: Yes (Other)
  Sender: FDA-Public Use
  Company Number: SG-TEVA-2020-SG-1242110

PATIENT
  Age: 22 Year
  Sex: Female

DRUGS (2)
  1. PACLITAXEL. [Suspect]
     Active Substance: PACLITAXEL
     Indication: RENAL ARTERY STENOSIS
     Dosage: DRUG COATED BALLOON ANGIOPLASTY PERFORMED TWICE.
     Route: 065
  2. PACLITAXEL. [Suspect]
     Active Substance: PACLITAXEL
     Indication: RENAL ARTERY ANGIOPLASTY

REACTIONS (4)
  - Kidney transplant rejection [Recovering/Resolving]
  - Renal artery thrombosis [Recovering/Resolving]
  - Renal embolism [Recovering/Resolving]
  - Chronic allograft nephropathy [Recovering/Resolving]
